FAERS Safety Report 5455291-5 (Version None)
Quarter: 2007Q3

REPORT INFORMATION
  Report Type: 
  Country: None (occurrence: None)
  Receive Date: 20070918
  Receipt Date: 20070912
  Transmission Date: 20080115
  Serious: Yes (Other)
  Sender: FDA-Public Use
  Company Number: US-BAYER-200712922BCC

PATIENT
  Age: 31 Year
  Sex: Male
  Weight: 111 kg

DRUGS (12)
  1. ALEVE COLD AND SINUS [Suspect]
     Indication: SINUS HEADACHE
     Route: 048
     Dates: start: 20070801
  2. ONE-A-DAY MEN'S HEALTH FORMULA [Suspect]
     Indication: VITAMIN SUPPLEMENTATION
     Dates: start: 20070801
  3. ALTACE [Concomitant]
  4. BACLOFEN [Concomitant]
  5. CELEBREX [Concomitant]
  6. HYDRALAZINE HCL [Concomitant]
  7. LYRICA [Concomitant]
  8. PHENERGAN HCL [Concomitant]
  9. PRILOSEC [Concomitant]
  10. TRAMADOL HCL [Concomitant]
  11. ULTRAM [Concomitant]
  12. ULTRAM ER [Concomitant]

REACTIONS (1)
  - BLOOD PRESSURE INCREASED [None]
